FAERS Safety Report 5760027-4 (Version None)
Quarter: 2008Q2

REPORT INFORMATION
  Report Type: 
  Country: None (occurrence: None)
  Receive Date: 20080605
  Receipt Date: 20080602
  Transmission Date: 20081010
  Serious: Yes (Hospitalization)
  Sender: FDA-Public Use
  Company Number: BR-ASTRAZENECA-2008UW11167

PATIENT
  Age: 64 Year
  Sex: Female
  Weight: 97 kg

DRUGS (2)
  1. NEXIUM [Suspect]
     Route: 048
     Dates: start: 20080513, end: 20080518
  2. EUTHYROX [Concomitant]
     Indication: HYPERTHYROIDISM
     Route: 048
     Dates: start: 19880101

REACTIONS (5)
  - DRUG ADMINISTRATION ERROR [None]
  - LIVER ABSCESS [None]
  - PAIN [None]
  - PYREXIA [None]
  - YELLOW SKIN [None]
